FAERS Safety Report 5879870-6 (Version None)
Quarter: 2008Q3

REPORT INFORMATION
  Report Type: 
  Country: None (occurrence: None)
  Receive Date: 20080912
  Receipt Date: 20080906
  Transmission Date: 20090109
  Serious: Yes (Other)
  Sender: FDA-Public Use
  Company Number: CA-ABBOTT-08P-028-0474966-00

PATIENT
  Sex: Female

DRUGS (2)
  1. HUMIRA [Suspect]
     Indication: PSORIATIC ARTHROPATHY
     Route: 058
     Dates: start: 20080805, end: 20080805
  2. HUMIRA [Suspect]

REACTIONS (3)
  - LIMB INJURY [None]
  - OEDEMA PERIPHERAL [None]
  - OSTEOMYELITIS [None]
